FAERS Safety Report 10692229 (Version 1)
Quarter: 2015Q1

REPORT INFORMATION
  Report Type: Report from Study
  Country: US (occurrence: US)
  Receive Date: 20150106
  Receipt Date: 20150106
  Transmission Date: 20150720
  Serious: Yes (Other)
  Sender: FDA-Public Use
  Company Number: US-BRISTOL-MYERS SQUIBB COMPANY-BMS-2014-005159

PATIENT
  Sex: Male

DRUGS (1)
  1. ABATACEPT [Suspect]
     Active Substance: ABATACEPT
     Indication: CHRONIC GRAFT VERSUS HOST DISEASE
     Dosage: 10 MG/KG, UNK
     Route: 065
     Dates: start: 20141209

REACTIONS (1)
  - Supraventricular tachycardia [Recovered/Resolved]
